FAERS Safety Report 21747472 (Version 1)
Quarter: 2022Q4

REPORT INFORMATION
  Report Type: Spontaneous
  Country: CA (occurrence: None)
  Receive Date: 20221219
  Receipt Date: 20221219
  Transmission Date: 20230112
  Serious: Yes (Other)
  Sender: FDA-Public Use
  Company Number: CA-ROCHE-3244766

PATIENT
  Age: 54 Year
  Sex: Female
  Weight: 105 kg

DRUGS (6)
  1. ACTEMRA [Suspect]
     Active Substance: TOCILIZUMAB
     Indication: Rheumatoid arthritis
     Route: 042
  2. RITUXIMAB [Suspect]
     Active Substance: RITUXIMAB
     Indication: Rheumatoid arthritis
     Route: 042
  3. LEVOTHYROXINE SODIUM [Concomitant]
     Active Substance: LEVOTHYROXINE SODIUM
  4. MELOXICAM [Concomitant]
     Active Substance: MELOXICAM
  5. MELOXICAM [Concomitant]
     Active Substance: MELOXICAM
  6. PERINDOPRIL [Concomitant]
     Active Substance: PERINDOPRIL

REACTIONS (4)
  - Ankle fracture [Recovered/Resolved]
  - Fracture infection [Recovered/Resolved]
  - Ill-defined disorder [Recovered/Resolved]
  - Weight increased [Recovered/Resolved]
